FAERS Safety Report 16856238 (Version 8)
Quarter: 2020Q1

REPORT INFORMATION
  Report Type: Spontaneous
  Country: US (occurrence: US)
  Receive Date: 20190926
  Receipt Date: 20200327
  Transmission Date: 20200409
  Serious: Yes (Other)
  Sender: FDA-Public Use
  Company Number: US-PFIZER INC-2019413833

PATIENT
  Age: 47 Year
  Sex: Male
  Weight: 92.97 kg

DRUGS (1)
  1. BENEFIX [Suspect]
     Active Substance: COAGULATION FACTOR IX RECOMBINANT HUMAN\ISOPROPYL ALCOHOL
     Indication: JOINT INJURY
     Dosage: AVERAGE 10000 UNITS PER DOSE, AS NEEDED
     Dates: start: 20190831, end: 20200220

REACTIONS (5)
  - Joint injury [Not Recovered/Not Resolved]
  - Fall [Recovered/Resolved]
  - Meniscus injury [Recovered/Resolved]
  - Femur fracture [Unknown]
  - Ligament injury [Not Recovered/Not Resolved]

NARRATIVE: CASE EVENT DATE: 20190831
